FAERS Safety Report 14594069 (Version 1)
Quarter: 2018Q1

REPORT INFORMATION
  Report Type: Spontaneous
  Country: US (occurrence: US)
  Receive Date: 20180302
  Receipt Date: 20180302
  Transmission Date: 20180509
  Serious: No
  Sender: FDA-Public Use
  Company Number: US-AMGEN-USASP2017118591

PATIENT
  Age: 74 Year
  Sex: Female
  Weight: 126 kg

DRUGS (1)
  1. SENSIPAR [Suspect]
     Active Substance: CINACALCET HYDROCHLORIDE
     Indication: BLOOD PARATHYROID HORMONE INCREASED
     Dosage: 180 MG, QD
     Route: 048
     Dates: start: 201611

REACTIONS (1)
  - Therapy non-responder [Unknown]
